FAERS Safety Report 4691418-0 (Version None)
Quarter: 2005Q2

REPORT INFORMATION
  Report Type: 
  Country: None (occurrence: None)
  Receive Date: 20050615
  Receipt Date: 20050603
  Transmission Date: 20051028
  Serious: Yes (Hospitalization, Other)
  Sender: FDA-Public Use
  Company Number: KII-2005-0016886

PATIENT
  Sex: Female

DRUGS (8)
  1. OXYCONTIN [Suspect]
     Dosage: ORAL
     Route: 048
  2. METHADONE (METHADONE) [Suspect]
     Dosage: SEE TEXT, ORAL
     Route: 048
  3. KETAMINE (KETAMINE) [Suspect]
     Dosage: ORAL
     Route: 048
  4. ANTIPSYCHOTICS () [Suspect]
     Dosage: ORAL
     Route: 048
  5. TRAMADOL HCL [Suspect]
     Dosage: ORAL
     Route: 048
  6. ANTIBIOTICS () [Suspect]
  7. BENZODIAZEPINE DERIVATIVES () [Suspect]
  8. TETRAHYDROCANNABINOL (TETRAHYDROCANNABINOL) [Suspect]

REACTIONS (7)
  - BLOOD POTASSIUM DECREASED [None]
  - CYANOSIS [None]
  - DRUG ABUSER [None]
  - DRUG SCREEN POSITIVE [None]
  - HEART RATE INCREASED [None]
  - LOSS OF CONSCIOUSNESS [None]
  - RESPIRATORY RATE DECREASED [None]
